FAERS Safety Report 25005573 (Version 1)
Quarter: 2025Q1

REPORT INFORMATION
  Report Type: Spontaneous
  Country: CN (occurrence: CN)
  Receive Date: 20250224
  Receipt Date: 20250224
  Transmission Date: 20250408
  Serious: Yes (Other)
  Sender: OTSUKA
  Company Number: CN-MMM-Otsuka-2UZV1N4A

PATIENT
  Age: 56 Year
  Sex: Male
  Weight: 68.5 kg

DRUGS (1)
  1. BUSULFEX [Suspect]
     Active Substance: BUSULFAN
     Indication: Non-Hodgkin^s lymphoma
     Dosage: 45 MG, QID
     Route: 042
     Dates: start: 20250207, end: 20250209

REACTIONS (2)
  - Epilepsy [Recovering/Resolving]
  - Product use in unapproved indication [Unknown]

NARRATIVE: CASE EVENT DATE: 20250207
